FAERS Safety Report 18055440 (Version 1)
Quarter: 2020Q3

REPORT INFORMATION
  Report Type: Spontaneous
  Country: CN (occurrence: CN)
  Receive Date: 20200722
  Receipt Date: 20200722
  Transmission Date: 20201103
  Serious: Yes (Hospitalization, Other)
  Sender: FDA-Public Use
  Company Number: CN-PFIZER INC-2020275508

PATIENT
  Age: 48 Year
  Sex: Male
  Weight: 67 kg

DRUGS (1)
  1. METHOTREXATE. [Suspect]
     Active Substance: METHOTREXATE
     Indication: ACUTE LYMPHOCYTIC LEUKAEMIA
     Dosage: 5500 MG, 1X/DAY
     Route: 041
     Dates: start: 20200622, end: 20200622

REACTIONS (8)
  - Blood creatinine increased [Recovering/Resolving]
  - Renal impairment [Recovering/Resolving]
  - Mouth ulceration [Recovering/Resolving]
  - Thrombocytopenia [Unknown]
  - Mucosal disorder [Recovering/Resolving]
  - Pyrexia [Unknown]
  - Leukopenia [Recovering/Resolving]
  - White blood cell count decreased [Recovering/Resolving]

NARRATIVE: CASE EVENT DATE: 20200623
